FAERS Safety Report 22261830 (Version 1)
Quarter: 2023Q2

REPORT INFORMATION
  Report Type: Spontaneous
  Country: US (occurrence: US)
  Receive Date: 20230428
  Receipt Date: 20230428
  Transmission Date: 20230721
  Serious: No
  Sender: FDA-Public Use
  Company Number: US-AMGEN-USASP2023066280

PATIENT
  Sex: Female

DRUGS (8)
  1. KANJINTI [Suspect]
     Active Substance: TRASTUZUMAB-ANNS
     Indication: Triple negative breast cancer
     Dosage: UNK
     Route: 065
     Dates: start: 20230302
  2. PERJETA [Concomitant]
     Active Substance: PERTUZUMAB
     Dosage: UNK
     Route: 065
  3. TAXOTERE [Concomitant]
     Active Substance: DOCETAXEL
     Dosage: UNK
     Route: 065
  4. CARBOPLATIN [Concomitant]
     Active Substance: CARBOPLATIN
     Dosage: UNK
     Route: 065
  5. CLARITIN [Concomitant]
     Active Substance: LORATADINE
     Dosage: UNK
     Route: 065
  6. AMOXICILLIN [Concomitant]
     Active Substance: AMOXICILLIN
     Dosage: UNK
     Route: 065
  7. PREDNISONE [Concomitant]
     Active Substance: PREDNISONE
     Dosage: UNK
     Route: 065
  8. ALBUTEROL [Concomitant]
     Active Substance: ALBUTEROL
     Dosage: UNK
     Route: 065

REACTIONS (3)
  - Upper respiratory tract infection [Not Recovered/Not Resolved]
  - Wheezing [Not Recovered/Not Resolved]
  - Dyspnoea [Not Recovered/Not Resolved]
